FAERS Safety Report 5665002-6 (Version None)
Quarter: 2008Q1

REPORT INFORMATION
  Report Type: 
  Country: None (occurrence: None)
  Receive Date: 20080314
  Receipt Date: 20080303
  Transmission Date: 20080703
  Serious: Yes (Other)
  Sender: FDA-Public Use
  Company Number: GB-PFIZER INC-2008020215

PATIENT
  Age: 91 Year
  Sex: Male

DRUGS (2)
  1. PREGABALIN [Suspect]
     Indication: PAIN
     Route: 048
     Dates: start: 20080211, end: 20080213
  2. TRAMADOL HCL [Concomitant]
     Indication: PAIN
     Route: 048

REACTIONS (3)
  - CONFUSIONAL STATE [None]
  - MUSCLE SPASMS [None]
  - RASH ERYTHEMATOUS [None]
